FAERS Safety Report 8816805 (Version 1)
Quarter: 2012Q4

REPORT INFORMATION
  Report Type: Spontaneous
  Country: DE (occurrence: None)
  Receive Date: 20121001
  Receipt Date: 20121001
  Transmission Date: 20130627
  Serious: Yes (Hospitalization)
  Sender: FDA-Public Use
  Company Number: GER/GER/12/0026009

PATIENT
  Age: 44 Year
  Sex: Male

DRUGS (5)
  1. VENLAFAXIN [Suspect]
     Route: 048
     Dates: end: 201204
  2. VENLAFAXIN [Suspect]
     Route: 048
     Dates: end: 201204
  3. VENLAFAXIN [Suspect]
     Route: 048
     Dates: start: 201204
  4. VENLAFAXIN [Suspect]
     Route: 048
     Dates: start: 201204
  5. TRIMIPRAMINE [Concomitant]

REACTIONS (1)
  - Grand mal convulsion [None]
